FAERS Safety Report 21505280 (Version 2)
Quarter: 2023Q1

REPORT INFORMATION
  Report Type: Spontaneous
  Country: DE (occurrence: DE)
  Receive Date: 20221026
  Receipt Date: 20230123
  Transmission Date: 20230418
  Serious: No
  Sender: FDA-Public Use
  Company Number: DE-ALKEM LABORATORIES LIMITED-DE-ALKEM-2022-10274

PATIENT
  Age: 19 Year
  Sex: Female
  Weight: 60 kg

DRUGS (46)
  1. FINGOLIMOD [Suspect]
     Active Substance: FINGOLIMOD
     Indication: Relapsing-remitting multiple sclerosis
     Dosage: 0.5 MILLIGRAM, TABLET (UNCOATED, ORAL)
     Route: 048
     Dates: start: 20201006
  2. FINGOLIMOD [Suspect]
     Active Substance: FINGOLIMOD
     Dosage: UNK, TABLET (UNCOATED, ORAL)
     Route: 048
     Dates: start: 20201103
  3. FINGOLIMOD [Suspect]
     Active Substance: FINGOLIMOD
     Dosage: 0.5 MILLIGRAM
     Route: 048
     Dates: start: 20201109, end: 20201223
  4. COPAXONE [Concomitant]
     Active Substance: GLATIRAMER ACETATE
     Indication: Multiple sclerosis
     Dosage: 40 MILLIGRAM, EVERY 0.33 WEEK
     Route: 058
     Dates: start: 202101, end: 202103
  5. COMIRNATY [Concomitant]
     Active Substance: TOZINAMERAN
     Indication: Product used for unknown indication
     Dosage: 0.3 MILLIGRAM, 1 TOTAL
     Route: 058
     Dates: start: 20210422, end: 20210422
  6. COMIRNATY [Concomitant]
     Active Substance: TOZINAMERAN
     Dosage: 0.3 MILLIGRAM, 1 TOTAL
     Route: 030
     Dates: start: 20210520, end: 20210520
  7. ERGOCALCIFEROL [Concomitant]
     Active Substance: ERGOCALCIFEROL
     Indication: Product used for unknown indication
     Dosage: 2000 INTERNATIONAL UNIT, QD, EVERY 1 DAY
     Route: 048
     Dates: start: 202106
  8. DIETARY SUPPLEMENT [Concomitant]
     Active Substance: DIETARY SUPPLEMENT
     Indication: Product used for unknown indication
     Dosage: UNK, 2 AS NECESSARY
     Route: 065
     Dates: start: 202105
  9. GABAPENTIN [Concomitant]
     Active Substance: GABAPENTIN
     Indication: Product used for unknown indication
     Dosage: 100 MILLIGRAM, EVERY 12 HOUR
     Route: 048
     Dates: start: 202104, end: 202104
  10. Kalinor [Concomitant]
     Indication: Product used for unknown indication
     Dosage: UNK, 2 AS NECESSARY
     Route: 048
     Dates: start: 202104
  11. LEVETIRACETAM [Concomitant]
     Active Substance: LEVETIRACETAM
     Indication: Product used for unknown indication
     Dosage: 500 MILLIGRAM, BID, EVERY 12 HOUR
     Route: 048
     Dates: start: 202104, end: 202106
  12. MAGNESIUM [Concomitant]
     Active Substance: MAGNESIUM
     Indication: Product used for unknown indication
     Dosage: 100 MILLIGRAM, QD, EVERY 1 DAY
     Route: 048
     Dates: start: 202106, end: 202108
  13. METHYLPREDNISOLONE [Concomitant]
     Active Substance: METHYLPREDNISOLONE
     Indication: Multiple sclerosis
     Dosage: 1000 MILLIGRAM, QD, EVERY 1 DAY
     Route: 042
     Dates: start: 20210330, end: 20210401
  14. METHYLPREDNISOLONE [Concomitant]
     Active Substance: METHYLPREDNISOLONE
     Dosage: 1000 MILLIGRAM, QD, EVERY 1 DAY
     Route: 042
     Dates: start: 20210227, end: 20210301
  15. PANTOPRAZOLE [Concomitant]
     Active Substance: PANTOPRAZOLE
     Indication: Product used for unknown indication
     Dosage: 40 MILLIGRAM, 1 AS NECESSARY
     Route: 048
     Dates: start: 202102
  16. PREDNISOLONE [Concomitant]
     Active Substance: PREDNISOLONE
     Indication: Product used for unknown indication
     Dosage: 80 MILLIGRAM, QD, EVERY 1 DAY
     Route: 048
     Dates: start: 20210422, end: 20210428
  17. PREDNISOLONE [Concomitant]
     Active Substance: PREDNISOLONE
     Dosage: 70 MILLIGRAM, QD, EVERY 1 DAY
     Route: 048
     Dates: start: 20210429, end: 20210502
  18. PREDNISOLONE [Concomitant]
     Active Substance: PREDNISOLONE
     Dosage: 50 MILLIGRAM, QD, EVERY 1 DAY
     Route: 048
     Dates: start: 20210507, end: 20210511
  19. PREDNISOLONE [Concomitant]
     Active Substance: PREDNISOLONE
     Dosage: 40 MILLIGRAM, QD, EVERY 1 DAY
     Route: 048
     Dates: start: 20210518, end: 20210524
  20. PREDNISOLONE [Concomitant]
     Active Substance: PREDNISOLONE
     Dosage: 4 MILLIGRAM, QD, EVERY 1 DAY
     Route: 048
     Dates: start: 20210828, end: 20210905
  21. PREDNISOLONE [Concomitant]
     Active Substance: PREDNISOLONE
     Dosage: 60 MILLIGRAM
     Route: 048
     Dates: start: 20210503, end: 20210506
  22. PREDNISOLONE [Concomitant]
     Active Substance: PREDNISOLONE
     Dosage: 15 MILLIGRAM, QD, EVERY 1 DAY
     Route: 048
     Dates: start: 20210707, end: 20210709
  23. PREDNISOLONE [Concomitant]
     Active Substance: PREDNISOLONE
     Dosage: 30 MILLIGRAM, QD, EVERY 1 DAY
     Route: 048
     Dates: start: 20210920, end: 20210924
  24. PREDNISOLONE [Concomitant]
     Active Substance: PREDNISOLONE
     Dosage: 4 MILLIGRAM, QD, EVERY 1 DAY
     Route: 048
     Dates: start: 20210817, end: 20210821
  25. PREDNISOLONE [Concomitant]
     Active Substance: PREDNISOLONE
     Dosage: 35 MILLIGRAM, 1 AS NECESSARY
     Route: 048
     Dates: start: 20210525, end: 20210530
  26. PREDNISOLONE [Concomitant]
     Active Substance: PREDNISOLONE
     Dosage: 3 MILLIGRAM, QD, EVERY 1 DAY
     Route: 048
     Dates: start: 20210906, end: 20210908
  27. PREDNISOLONE [Concomitant]
     Active Substance: PREDNISOLONE
     Dosage: 15 MILLIGRAM, QD, EVERY 1 DAY
     Route: 048
     Dates: start: 20210621, end: 20210623
  28. PREDNISOLONE [Concomitant]
     Active Substance: PREDNISOLONE
     Dosage: 5 MILLIGRAM, QD, EVERY 1 DAY
     Route: 048
     Dates: start: 20210914, end: 20210916
  29. PREDNISOLONE [Concomitant]
     Active Substance: PREDNISOLONE
     Dosage: 12.5 MILLIGRAM, QD, EVERY 1 DAY
     Route: 048
     Dates: start: 20210710, end: 20210718
  30. PREDNISOLONE [Concomitant]
     Active Substance: PREDNISOLONE
     Dosage: 7.5 MILLIGRAM, QD, EVERY 1 DAY
     Route: 048
     Dates: start: 20210726, end: 20210802
  31. PREDNISOLONE [Concomitant]
     Active Substance: PREDNISOLONE
     Dosage: 20 MILLIGRAM, QD, EVERY 1 DAY
     Route: 048
     Dates: start: 20210614, end: 20210620
  32. PREDNISOLONE [Concomitant]
     Active Substance: PREDNISOLONE
     Dosage: 4 MILLIGRAM, QD, EVERY 1 DAY
     Route: 048
     Dates: start: 20210909, end: 20210913
  33. PREDNISOLONE [Concomitant]
     Active Substance: PREDNISOLONE
     Dosage: 30 MILLIGRAM, QD, EVERY 1 DAY
     Route: 048
     Dates: start: 20210516, end: 20210518
  34. PREDNISOLONE [Concomitant]
     Active Substance: PREDNISOLONE
     Dosage: 7 MILLIGRAM, QD, EVERY 1 DAY
     Route: 048
     Dates: start: 20210917, end: 20210919
  35. PREDNISOLONE [Concomitant]
     Active Substance: PREDNISOLONE
     Dosage: 25 MILLIGRAM, QD, EVERY 1 DAY
     Route: 048
     Dates: start: 20210607, end: 20210613
  36. PREDNISOLONE [Concomitant]
     Active Substance: PREDNISOLONE
     Dosage: 5 MILLIGRAM, QD, EVERY 1 DAY
     Route: 048
     Dates: start: 20210803, end: 20210816
  37. PREDNISOLONE [Concomitant]
     Active Substance: PREDNISOLONE
     Dosage: 10 MILLIGRAM, QD, EVERY 1 DAY
     Route: 048
     Dates: start: 20210705, end: 20210706
  38. PREDNISOLONE [Concomitant]
     Active Substance: PREDNISOLONE
     Dosage: 20 MILLIGRAM, QD, EVERY 1 DAY
     Route: 048
     Dates: start: 20210624, end: 20210627
  39. PREDNISOLONE [Concomitant]
     Active Substance: PREDNISOLONE
     Dosage: 15 MILLIGRAM, QD, EVERY 1 DAY
     Route: 048
     Dates: start: 20210628, end: 20210704
  40. PREDNISOLONE [Concomitant]
     Active Substance: PREDNISOLONE
     Dosage: 10 MILLIGRAM, QD, EVERY 1 DAY
     Route: 048
     Dates: start: 20210719, end: 20210725
  41. PREDNISOLONE [Concomitant]
     Active Substance: PREDNISOLONE
     Dosage: 30 MILLIGRAM, QD, EVERY 1 DAY
     Route: 048
     Dates: start: 20210531, end: 20210606
  42. PREDNISOLONE [Concomitant]
     Active Substance: PREDNISOLONE
     Dosage: 40 MILLIGRAM, QD, EVERY 1 DAY
     Route: 048
     Dates: start: 20210512, end: 20210515
  43. PREGABALIN [Concomitant]
     Active Substance: PREGABALIN
     Indication: Product used for unknown indication
     Dosage: 25 MILLIGRAM, BID, EVERY 12 HOUR
     Route: 048
     Dates: start: 202104, end: 202104
  44. TYSABRI [Concomitant]
     Active Substance: NATALIZUMAB
     Indication: Multiple sclerosis
     Dosage: 300 MILLIGRAM, EVERY 1 MONTH
     Route: 042
     Dates: start: 20210413
  45. DIMENHYDRINATE [Concomitant]
     Active Substance: DIMENHYDRINATE
     Indication: Product used for unknown indication
     Dosage: UNK, 1 AS NECESSARY
     Route: 042
     Dates: start: 202104
  46. ZOPICLONE [Concomitant]
     Active Substance: ZOPICLONE
     Indication: Product used for unknown indication
     Dosage: 7.5 MILLIGRAM, 1 AS NECESSARY
     Route: 048
     Dates: start: 202104

REACTIONS (1)
  - Lymphopenia [Recovered/Resolved]

NARRATIVE: CASE EVENT DATE: 20201103
